FAERS Safety Report 8790846 (Version 1)
Quarter: 2012Q4

REPORT INFORMATION
  Report Type: Spontaneous
  Country: FR (occurrence: None)
  Receive Date: 20120907
  Receipt Date: 20120907
  Transmission Date: 20130627
  Serious: Yes (Hospitalization, Other)
  Sender: FDA-Public Use
  Company Number: 2012P1055683

PATIENT
  Age: 88 Year
  Sex: Female

DRUGS (5)
  1. CITALOPRAM [Suspect]
     Indication: MAJOR DEPRESSIVE DISORDER NOS
  2. MICONAZOLE [Suspect]
     Indication: ORAL CANDIDIASIS
  3. LEVOTHYROXINE [Concomitant]
  4. TIMOLOL [Concomitant]
  5. TRAVOPROST [Concomitant]

REACTIONS (8)
  - Somnolence [None]
  - Confusional state [None]
  - Hypertonia [None]
  - Tremor [None]
  - Tachycardia [None]
  - Blood pressure increased [None]
  - Hyponatraemia [None]
  - Drug interaction [None]
